FAERS Safety Report 7375357 (Version 5)
Quarter: 2013Q3

REPORT INFORMATION
  Report Type: Spontaneous
  Country: US (occurrence: US)
  Receive Date: 20100503
  Receipt Date: 20130821
  Transmission Date: 20140515
  Serious: Yes (Death, Hospitalization, Disabling, Other)
  Sender: FDA-Public Use
  Company Number: US-ROCHE-700744

PATIENT
  Sex: Female

DRUGS (6)
  1. RITUXAN [Suspect]
     Indication: NON-HODGKIN^S LYMPHOMA
     Route: 065
     Dates: start: 200706, end: 200711
  2. RITUXAN [Suspect]
     Dosage: UNK
     Route: 065
     Dates: start: 20090205, end: 20090422
  3. RITUXAN [Suspect]
     Dosage: MAINTENANCE DOSE
     Route: 065
     Dates: start: 20090505, end: 20100212
  4. CYTOXAN [Concomitant]
     Indication: PRODUCT USED FOR UNKNOWN INDICATION
  5. VINCRISTINE [Concomitant]
     Indication: PRODUCT USED FOR UNKNOWN INDICATION
  6. BENDAMUSTINE [Concomitant]
     Indication: PRODUCT USED FOR UNKNOWN INDICATION

REACTIONS (5)
  - Progressive multifocal leukoencephalopathy [Fatal]
  - Progressive multifocal leukoencephalopathy [Not Recovered/Not Resolved]
  - JC virus infection [Unknown]
  - Speech disorder [Unknown]
  - Gait disturbance [Unknown]
